FAERS Safety Report 17749211 (Version 2)
Quarter: 2020Q2

REPORT INFORMATION
  Report Type: Report from Study
  Country: US (occurrence: US)
  Receive Date: 20200506
  Receipt Date: 20200513
  Transmission Date: 20200714
  Serious: Yes (Disabling)
  Sender: FDA-Public Use
  Company Number: US-HORIZON-KRY-0595-2020

PATIENT
  Age: 78 Year
  Sex: Female

DRUGS (1)
  1. KRYSTEXXA [Suspect]
     Active Substance: PEGLOTICASE
     Indication: PRODUCT USED FOR UNKNOWN INDICATION
     Route: 042

REACTIONS (3)
  - Swelling face [Unknown]
  - Pain [Unknown]
  - Peripheral swelling [Unknown]
